FAERS Safety Report 8765561 (Version 2)
Quarter: 2012Q4

REPORT INFORMATION
  Report Type: 
  Country: US (occurrence: US)
  Receive Date: 20120902
  Receipt Date: 20120914
  Transmission Date: 20130627
  Serious: Yes (Hospitalization, Other)
  Sender: FDA-Public Use
  Company Number: PHEH2012US017034

PATIENT
  Sex: Male

DRUGS (15)
  1. ZOMETA [Suspect]
     Indication: PROSTATE CANCER
     Dosage: 4 mg, UNK
     Route: 042
  2. ZOMETA [Suspect]
     Route: 042
     Dates: start: 20111128
  3. TAXOTERE [Concomitant]
     Dates: start: 20110225
  4. TAXOTERE [Concomitant]
     Dates: start: 20110923
  5. FEXOFENADINE [Concomitant]
     Dosage: 180 mg, daily
  6. TIMOLOL [Concomitant]
     Dosage: UNK UKN, BID
  7. UTA [Concomitant]
     Dosage: UNK UKN, TID
  8. OXYBUTYNIN [Concomitant]
     Dosage: 15 mg, daily
  9. AMBIEN [Concomitant]
     Dosage: 10 mg, UNK
  10. CASODEX [Concomitant]
     Dosage: 50 mg, daily
  11. LUPRON [Concomitant]
     Dosage: UNK UKN, monthly
  12. LORTAB [Concomitant]
     Indication: PAIN
  13. COMPAZINE [Concomitant]
     Indication: NAUSEA
     Dosage: 10 mg, every 6 hours
  14. OXYCODONE [Concomitant]
     Dosage: 30 mg, UNK
  15. DURAGESIC [Concomitant]
     Dosage: 50 ug, every 72 hours

REACTIONS (13)
  - Coma [Unknown]
  - Dysuria [Unknown]
  - Erectile dysfunction [Unknown]
  - Arthritis [Unknown]
  - Glaucoma [Unknown]
  - Pain [Unknown]
  - Hypertension [Unknown]
  - Disease recurrence [Unknown]
  - Prostatic specific antigen increased [Unknown]
  - Nausea [Unknown]
  - Anaemia [Unknown]
  - Neoplasm progression [Unknown]
  - Malignant neoplasm progression [Unknown]
